FAERS Safety Report 7192935-4 (Version None)
Quarter: 2010Q4

REPORT INFORMATION
  Report Type: 
  Country: None (occurrence: None)
  Receive Date: 20101223
  Receipt Date: 20101214
  Transmission Date: 20110411
  Serious: Yes (Other)
  Sender: FDA-Public Use
  Company Number: US-GENZYME-CART-1000057

PATIENT

DRUGS (1)
  1. CARTICEL [Suspect]
     Indication: CHONDROPATHY
     Dosage: UNK
     Route: 014
     Dates: start: 19960822, end: 19960822

REACTIONS (1)
  - ADVERSE EVENT [None]
